FAERS Safety Report 4620361-8 (Version None)
Quarter: 2005Q1

REPORT INFORMATION
  Report Type: 
  Country: None (occurrence: None)
  Receive Date: 20050324
  Receipt Date: 20050315
  Transmission Date: 20050727
  Serious: Yes (Other)
  Sender: FDA-Public Use
  Company Number: CIP05000601

PATIENT
  Sex: Female

DRUGS (3)
  1. ACTONEL [Suspect]
     Dosage: 5 MG DAILY, ORAL
     Route: 048
     Dates: start: 20030101
  2. GLUCOSAMINE (GLUCOSAMINE) [Concomitant]
  3. MULTIVITAMINS (RETINOL, NICOTINAMIDE, RIBOFLAVIN, PANTHENOL, FOLIC ACI [Concomitant]

REACTIONS (2)
  - BONE DENSITY DECREASED [None]
  - BREAST CANCER FEMALE [None]
